FAERS Safety Report 10709571 (Version 1)
Quarter: 2015Q1

REPORT INFORMATION
  Report Type: Spontaneous
  Country: US (occurrence: None)
  Receive Date: 20150113
  Receipt Date: 20150113
  Transmission Date: 20150721
  Serious: No
  Sender: FDA-Public Use
  Company Number: None

PATIENT
  Age: 75 Year
  Sex: Female
  Weight: 77.11 kg

DRUGS (1)
  1. MYRBETRIQ [Suspect]
     Active Substance: MIRABEGRON
     Indication: URINARY INCONTINENCE
     Dosage: ONCE DAILY, 1 PILL
     Route: 048
     Dates: start: 20141021, end: 20150109

REACTIONS (4)
  - Dysuria [None]
  - Urinary retention [None]
  - Cystitis [None]
  - Nocturia [None]

NARRATIVE: CASE EVENT DATE: 20150112
